FAERS Safety Report 11322314 (Version 1)
Quarter: 2015Q3

REPORT INFORMATION
  Report Type: Spontaneous
  Country: FR (occurrence: None)
  Receive Date: 20150728
  Receipt Date: 20150728
  Transmission Date: 20151125
  Serious: Yes (Death)
  Sender: FDA-Public Use
  Company Number: FRA-SPN-2015003

PATIENT
  Age: 43 Year
  Sex: Female

DRUGS (2)
  1. CARBAGLU [Suspect]
     Active Substance: CARGLUMIC ACID
     Indication: HYPERAMMONAEMIA
     Route: 048
     Dates: start: 20141010, end: 20141027
  2. AMMONAPS [Concomitant]
     Active Substance: SODIUM PHENYLBUTYRATE

REACTIONS (2)
  - Coma [None]
  - Death [None]

NARRATIVE: CASE EVENT DATE: 20141027
